FAERS Safety Report 7330877-1 (Version None)
Quarter: 2011Q1

REPORT INFORMATION
  Report Type: 
  Country: None (occurrence: None)
  Receive Date: 20110225
  Receipt Date: 20110225
  Transmission Date: 20110831
  Serious: Yes (Life-Threatening)
  Sender: FDA-Public Use
  Company Number: None

PATIENT
  Age: 53 Year
  Sex: Male
  Weight: 110.4 kg

DRUGS (1)
  1. PROTAMINE SULFATE [Suspect]
     Indication: SURGERY
     Dosage: 50 MG ONCE IV
     Route: 042
     Dates: start: 20110209, end: 20110209

REACTIONS (5)
  - ANAPHYLACTIC REACTION [None]
  - OXYGEN SATURATION DECREASED [None]
  - BRONCHOSPASM [None]
  - PULMONARY OEDEMA [None]
  - ANGIOEDEMA [None]
